FAERS Safety Report 9516175 (Version 1)
Quarter: 2013Q1

REPORT INFORMATION
  Report Type: Spontaneous
  Country: US (occurrence: None)
  Receive Date: 20130305
  Receipt Date: 20130305
  Transmission Date: 20140127
  Serious: Yes (Hospitalization)
  Sender: FDA-Public Use
  Company Number: 163-21880-12114113

PATIENT
  Age: 79 Year
  Sex: Male

DRUGS (3)
  1. REVLIMID [Suspect]
     Indication: PLASMA CELL MYELOMA
     Dosage: 20 MG, 14 IN 21 D, PO
     Route: 048
     Dates: start: 20121112, end: 20121119
  2. ZOMETA (ZOLEDRONIC ACID) (UNKNOWN) [Suspect]
  3. STEROIDS (CORTICOSTEROIDS) (UNKNOWN) [Suspect]

REACTIONS (1)
  - Renal failure [None]
